FAERS Safety Report 6025330-1 (Version None)
Quarter: 2008Q4

REPORT INFORMATION
  Report Type: 
  Country: None (occurrence: None)
  Receive Date: 20081224
  Receipt Date: 20081214
  Transmission Date: 20090506
  Serious: Yes (Other)
  Sender: FDA-Public Use
  Company Number: 2008AP003433

PATIENT
  Age: 55 Year
  Sex: Male

DRUGS (3)
  1. CIPROFLOXACIN HYDROCHLORIDE [Suspect]
     Indication: OSTEOMYELITIS CHRONIC
     Dosage: 1500 MG;QD PO
     Route: 048
  2. CEPHALEXIN [Concomitant]
  3. ANALGESICS (ANALGESICS) [Concomitant]

REACTIONS (3)
  - ANAEMIA MACROCYTIC [None]
  - GAMMA-GLUTAMYLTRANSFERASE INCREASED [None]
  - TOXIC OPTIC NEUROPATHY [None]
